FAERS Safety Report 10038688 (Version 1)
Quarter: 2014Q1

REPORT INFORMATION
  Report Type: Spontaneous
  Country: DE (occurrence: DE)
  Receive Date: 20140326
  Receipt Date: 20140326
  Transmission Date: 20141002
  Serious: Yes (Death, Hospitalization, Other)
  Sender: FDA-Public Use
  Company Number: DE-ACTELION-A-CH2014-96181

PATIENT
  Age: 47 Year
  Sex: Female

DRUGS (7)
  1. OPSUMIT [Suspect]
     Indication: PULMONARY ARTERIAL HYPERTENSION
     Dosage: UNK
     Route: 048
     Dates: start: 20140228, end: 20140307
  2. ADCIRCA [Concomitant]
     Dosage: 40 MG, OD
  3. METOPROLOL [Concomitant]
     Dosage: 23.75 MG, OD
  4. SPIRONOLACTON [Concomitant]
     Dosage: 50 MG, OD
  5. TOREM [Concomitant]
     Dosage: 30 MG, QD
  6. JODID [Concomitant]
     Dosage: 100 UNK, OD
  7. NOVALGIN [Concomitant]
     Dosage: 40 DROP, TID

REACTIONS (6)
  - Ventricular fibrillation [Fatal]
  - Hepatic cirrhosis [Not Recovered/Not Resolved]
  - Blood bilirubin increased [Not Recovered/Not Resolved]
  - Aspartate aminotransferase increased [Not Recovered/Not Resolved]
  - Alanine aminotransferase increased [Not Recovered/Not Resolved]
  - Renal failure acute [Not Recovered/Not Resolved]
